FAERS Safety Report 8592578-1 (Version None)
Quarter: 2012Q3

REPORT INFORMATION
  Report Type: 
  Country: None (occurrence: None)
  Receive Date: 20120814
  Receipt Date: 20120814
  Transmission Date: 20120928
  Serious: Yes (Other)
  Sender: FDA-Public Use
  Company Number: US-PFIZER INC-2012191811

PATIENT
  Age: 48 Year
  Sex: Female

DRUGS (3)
  1. VILAZODONE [Interacting]
     Dosage: UNK
  2. LYRICA [Suspect]
     Dosage: UNK
  3. HALCION [Concomitant]
     Dosage: UNK

REACTIONS (5)
  - THROMBOSIS [None]
  - FEELING HOT [None]
  - DRUG INTERACTION [None]
  - MUSCLE TWITCHING [None]
  - TREMOR [None]
